FAERS Safety Report 9336567 (Version 1)
Quarter: 2013Q2

REPORT INFORMATION
  Report Type: Spontaneous
  Country: US (occurrence: US)
  Receive Date: 20130607
  Receipt Date: 20130607
  Transmission Date: 20140414
  Serious: Yes (Other)
  Sender: FDA-Public Use
  Company Number: US-PFIZER INC-2013172378

PATIENT
  Sex: Male

DRUGS (4)
  1. LYRICA [Suspect]
     Dosage: 25 MG, 3X/DAY
  2. LYRICA [Suspect]
     Dosage: 75 MG (THREE 25MG LYRICA CAPSULE AT ONCE)
  3. LYRICA [Suspect]
     Dosage: 75 MG, 3X/DAY
  4. LYRICA [Suspect]
     Dosage: 225 MG (3 CAPSULES OF 75MG ALL AT ONCE)

REACTIONS (3)
  - Incorrect dose administered [Unknown]
  - Somnolence [Unknown]
  - Impaired driving ability [Unknown]
